FAERS Safety Report 8922369 (Version 1)
Quarter: 2012Q4

REPORT INFORMATION
  Report Type: 
  Country: GB (occurrence: GB)
  Receive Date: 20121123
  Receipt Date: 20121123
  Transmission Date: 20130627
  Serious: Yes (Death)
  Sender: FDA-Public Use
  Company Number: GB-009507513-1211GBR008504

PATIENT
  Age: 91 Year
  Sex: Male

DRUGS (7)
  1. SIMVASTATIN [Suspect]
     Dosage: 40 mg, UNK
     Route: 048
     Dates: end: 20121024
  2. AMIODARONE [Suspect]
     Indication: VENTRICULAR TACHYCARDIA
     Dosage: 200 mg, qd
     Route: 048
     Dates: start: 201012, end: 20121024
  3. ASPIRIN [Concomitant]
  4. BISOPROLOL [Concomitant]
  5. DOXAZOSIN MESYLATE [Concomitant]
  6. FUROSEMIDE [Concomitant]
  7. PERINDOPRIL [Concomitant]

REACTIONS (1)
  - Pulmonary fibrosis [Fatal]
